FAERS Safety Report 6131554-5 (Version None)
Quarter: 2009Q1

REPORT INFORMATION
  Report Type: 
  Country: None (occurrence: None)
  Receive Date: 20090325
  Receipt Date: 20081014
  Transmission Date: 20090719
  Serious: No
  Sender: FDA-Public Use
  Company Number: US-BRISTOL-MYERS SQUIBB COMPANY-14364061

PATIENT
  Sex: Male

DRUGS (3)
  1. ERBITUX [Suspect]
     Indication: SQUAMOUS CELL CARCINOMA
  2. PLAVIX [Concomitant]
  3. AMARYL [Concomitant]

REACTIONS (4)
  - DRY SKIN [None]
  - GINGIVAL PAIN [None]
  - NERVOUSNESS [None]
  - RASH PRURITIC [None]
